FAERS Safety Report 9494701 (Version 2)
Quarter: 2013Q3

REPORT INFORMATION
  Report Type: Spontaneous
  Country: US (occurrence: US)
  Receive Date: 20130903
  Receipt Date: 20130912
  Transmission Date: 20140515
  Serious: Yes (Death, Other)
  Sender: FDA-Public Use
  Company Number: US-JNJFOC-20130816822

PATIENT
  Sex: Female
  Weight: 6 kg

DRUGS (29)
  1. TOPAMAX [Suspect]
     Indication: INFANTILE SPASMS
     Dosage: COMPOUNDED SUSPENSION 6MG/ML, TAKING 7.5ML
     Route: 048
  2. TOPAMAX [Suspect]
     Indication: INFANTILE SPASMS
     Route: 048
  3. TOPAMAX [Suspect]
     Indication: EPILEPSY
     Route: 048
  4. TOPAMAX [Suspect]
     Indication: EPILEPSY
     Dosage: COMPOUNDED SUSPENSION 6MG/ML, TAKING 7.5ML
     Route: 048
  5. TOPAMAX [Suspect]
     Indication: INFANTILE SPASMS
     Route: 048
  6. TOPAMAX [Suspect]
     Indication: INFANTILE SPASMS
     Dosage: COMPOUNDED SUSPENSION 6MG/ML, TAKING 7.5ML
     Route: 048
  7. TOPAMAX [Suspect]
     Indication: EPILEPSY
     Route: 048
  8. TOPAMAX [Suspect]
     Indication: EPILEPSY
     Dosage: COMPOUNDED SUSPENSION 6MG/ML, TAKING 7.5ML
     Route: 048
  9. KLONOPIN [Suspect]
     Indication: INFANTILE SPASMS
     Dosage: HALF A TABLET
     Route: 048
  10. KLONOPIN [Suspect]
     Indication: INFANTILE SPASMS
     Dosage: ONE AND HALF TABLETS
     Route: 048
  11. KLONOPIN [Suspect]
     Indication: INFANTILE SPASMS
     Dosage: HALF A TABLET
     Route: 048
  12. KLONOPIN [Suspect]
     Indication: EPILEPSY
     Dosage: HALF A TABLET
     Route: 048
  13. KLONOPIN [Suspect]
     Indication: EPILEPSY
     Dosage: HALF A TABLET
     Route: 048
  14. KLONOPIN [Suspect]
     Indication: EPILEPSY
     Dosage: ONE AND HALF TABLETS
     Route: 048
  15. SABRIL [Suspect]
     Indication: INFANTILE SPASMS
     Route: 048
     Dates: start: 20110712
  16. SABRIL [Suspect]
     Indication: INFANTILE SPASMS
     Route: 048
  17. SABRIL [Suspect]
     Indication: INFANTILE SPASMS
     Route: 048
  18. SABRIL [Suspect]
     Indication: INFANTILE SPASMS
     Route: 048
  19. SABRIL [Suspect]
     Indication: INFANTILE SPASMS
     Route: 048
     Dates: start: 20120317
  20. SABRIL [Suspect]
     Indication: INFANTILE SPASMS
     Route: 048
  21. SABRIL [Suspect]
     Indication: EPILEPSY
     Route: 048
     Dates: start: 20120317
  22. SABRIL [Suspect]
     Indication: EPILEPSY
     Route: 048
     Dates: start: 20110712
  23. SABRIL [Suspect]
     Indication: EPILEPSY
     Route: 048
  24. SABRIL [Suspect]
     Indication: EPILEPSY
     Route: 048
  25. SABRIL [Suspect]
     Indication: EPILEPSY
     Route: 048
  26. SABRIL [Suspect]
     Indication: EPILEPSY
     Route: 048
  27. KEPPRA [Concomitant]
     Route: 065
  28. PREDNISONE [Concomitant]
     Route: 065
  29. ZANTAC [Concomitant]
     Route: 065

REACTIONS (3)
  - Death [Fatal]
  - Tonic convulsion [Unknown]
  - Convulsion [Unknown]
